FAERS Safety Report 5764207-3 (Version None)
Quarter: 2008Q2

REPORT INFORMATION
  Report Type: 
  Country: None (occurrence: None)
  Receive Date: 20080610
  Receipt Date: 20080526
  Transmission Date: 20081010
  Serious: Yes (Other)
  Sender: FDA-Public Use
  Company Number: NL-GENENTECH-262094

PATIENT

DRUGS (2)
  1. AVASTIN [Suspect]
     Indication: NEOPLASM
     Dosage: UNK, 2/WEEK
     Route: 065
  2. UNSPECIFIED MEDICATION [Suspect]
     Indication: NEOPLASM
     Dosage: UNK, BID
     Route: 065

REACTIONS (1)
  - RETINOPATHY HYPERTENSIVE [None]
